FAERS Safety Report 9538437 (Version 1)
Quarter: 2013Q3

REPORT INFORMATION
  Report Type: Spontaneous
  Country: US (occurrence: US)
  Receive Date: 20130920
  Receipt Date: 20130920
  Transmission Date: 20140515
  Serious: Yes (Other)
  Sender: FDA-Public Use
  Company Number: US-ASTRAZENECA-2013SE69013

PATIENT
  Sex: Female

DRUGS (2)
  1. FASLODEX [Suspect]
     Dosage: FIRST SHOT 500 MG UNKNOWN
     Route: 030
  2. FASLODEX [Suspect]
     Dosage: SECOND DOSE
     Route: 030

REACTIONS (2)
  - Loss of consciousness [Recovered/Resolved]
  - Syncope [Recovered/Resolved]
